FAERS Safety Report 7221422-X (Version None)
Quarter: 2011Q1

REPORT INFORMATION
  Report Type: 
  Country: None (occurrence: None)
  Receive Date: 20110112
  Receipt Date: 20110111
  Transmission Date: 20110831
  Serious: Yes (Hospitalization)
  Sender: FDA-Public Use
  Company Number: JP-ABBOTT-10P-087-0688944-00

PATIENT
  Age: 84 Year
  Sex: Male
  Weight: 58.7 kg

DRUGS (3)
  1. BICALUTAMIDE [Concomitant]
     Route: 048
     Dates: start: 20091216, end: 20100310
  2. LEUPROLIDE ACETATE [Suspect]
     Indication: PROSTATE CANCER STAGE II
     Route: 058
     Dates: start: 20080716
  3. BICALUTAMIDE [Concomitant]
     Indication: PROSTATE CANCER STAGE II
     Route: 048
     Dates: end: 20090610

REACTIONS (1)
  - MYOCARDIAL INFARCTION [None]
